FAERS Safety Report 23848053 (Version 2)
Quarter: 2024Q2

REPORT INFORMATION
  Report Type: Spontaneous
  Country: SK (occurrence: SK)
  Receive Date: 20240513
  Receipt Date: 20240514
  Transmission Date: 20240716
  Serious: Yes (Hospitalization, Other)
  Sender: FDA-Public Use
  Company Number: SK-BAUSCH-BL-2024-006089

PATIENT
  Age: 80 Year
  Sex: Male

DRUGS (1)
  1. DICLOFENAC SODIUM [Suspect]
     Active Substance: DICLOFENAC\DICLOFENAC SODIUM
     Indication: Spinal pain
     Dosage: MAXIMAL DOSE OF 150 MG /DAY
     Route: 048

REACTIONS (7)
  - Weight decreased [Unknown]
  - Microcytic anaemia [Unknown]
  - Dyspepsia [Unknown]
  - Stenosis [Unknown]
  - Gastrointestinal disorder [Unknown]
  - Gastrointestinal erosion [Unknown]
  - Gastrointestinal stenosis [Unknown]
